FAERS Safety Report 14503020 (Version 1)
Quarter: 2018Q1

REPORT INFORMATION
  Report Type: Spontaneous
  Country: US (occurrence: US)
  Receive Date: 20180207
  Receipt Date: 20180207
  Transmission Date: 20180509
  Serious: No
  Sender: FDA-Public Use
  Company Number: None

PATIENT
  Age: 77 Year
  Sex: Female

DRUGS (1)
  1. PROLIA [Suspect]
     Active Substance: DENOSUMAB
     Indication: OSTEOPOROSIS
     Dosage: 60MG/ML Q 6 MONTHS SUBQ
     Route: 058
     Dates: start: 20170802, end: 20180206

REACTIONS (1)
  - Myalgia [None]

NARRATIVE: CASE EVENT DATE: 20180206
